FAERS Safety Report 9316701 (Version 1)
Quarter: 2013Q2

REPORT INFORMATION
  Report Type: Spontaneous
  Country: US (occurrence: None)
  Receive Date: 20130528
  Receipt Date: 20130528
  Transmission Date: 20140414
  Serious: No
  Sender: FDA-Public Use
  Company Number: None

PATIENT
  Age: 76 Year
  Sex: Male
  Weight: 70.31 kg

DRUGS (1)
  1. WAL-PHED PE [Suspect]
     Dosage: SUGGESTED 2
     Route: 048
     Dates: start: 20130525, end: 20130526

REACTIONS (1)
  - Blood urine present [None]
